FAERS Safety Report 9379026 (Version 1)
Quarter: 2013Q3

REPORT INFORMATION
  Report Type: Spontaneous
  Country: US (occurrence: US)
  Receive Date: 20130702
  Receipt Date: 20130702
  Transmission Date: 20140515
  Serious: Yes (Other)
  Sender: FDA-Public Use
  Company Number: US-BRISTOL-MYERS SQUIBB COMPANY-19059930

PATIENT
  Age: 69 Year
  Sex: Male
  Weight: 87.07 kg

DRUGS (1)
  1. BYDUREON 2MG SUSPENSION [Suspect]
     Route: 058
     Dates: start: 20130522

REACTIONS (1)
  - Pancreatic carcinoma metastatic [Unknown]
